FAERS Safety Report 4306401-4 (Version None)
Quarter: 2004Q1

REPORT INFORMATION
  Report Type: 
  Country: None (occurrence: None)
  Receive Date: 20040225
  Receipt Date: 20030707
  Transmission Date: 20041129
  Serious: No
  Sender: FDA-Public Use
  Company Number: US-BRISTOL-MYERS SQUIBB COMPANY-12319489

PATIENT
  Age: 40 Year
  Sex: Female
  Weight: 63 kg

DRUGS (1)
  1. EXCEDRIN (MIGRAINE) [Suspect]
     Indication: MIGRAINE
     Dosage: FREQUENCY: TWICE, 4 HOURS APART
     Route: 048
     Dates: start: 20030706, end: 20030706

REACTIONS (4)
  - BALANCE DISORDER [None]
  - BLOOD PRESSURE INCREASED [None]
  - DYSPNOEA [None]
  - TREMOR [None]
